FAERS Safety Report 14212256 (Version 1)
Quarter: 2017Q4

REPORT INFORMATION
  Report Type: Spontaneous
  Country: AU (occurrence: US)
  Receive Date: 20171121
  Receipt Date: 20171121
  Transmission Date: 20180321
  Serious: Yes (Death, Other)
  Sender: FDA-Public Use
  Company Number: AU-009507513-1711USA005541

PATIENT
  Sex: Male

DRUGS (3)
  1. POTASSIUM ACETATE. [Suspect]
     Active Substance: POTASSIUM ACETATE
     Dosage: UNK
     Route: 042
     Dates: start: 20171108, end: 20171108
  2. ZEMURON [Suspect]
     Active Substance: ROCURONIUM BROMIDE
     Indication: NEUROMUSCULAR BLOCKADE
     Dosage: UNK
     Route: 042
     Dates: start: 20171108, end: 20171108
  3. ETOMIDATE. [Suspect]
     Active Substance: ETOMIDATE
     Indication: INDUCTION OF ANAESTHESIA
     Dosage: UNK
     Route: 042
     Dates: start: 20171108, end: 20171108

REACTIONS (3)
  - Pallor [Unknown]
  - Lip discolouration [Unknown]
  - Death [Fatal]

NARRATIVE: CASE EVENT DATE: 20171108
